FAERS Safety Report 20135883 (Version 6)
Quarter: 2022Q4

REPORT INFORMATION
  Report Type: Spontaneous
  Country: ES (occurrence: ES)
  Receive Date: 20211201
  Receipt Date: 20221104
  Transmission Date: 20230113
  Serious: Yes (Hospitalization)
  Sender: FDA-Public Use
  Company Number: ES-PFM-2021-11691

PATIENT
  Age: 79 Year
  Sex: Female

DRUGS (6)
  1. BRAFTOVI [Suspect]
     Active Substance: ENCORAFENIB
     Indication: Malignant melanoma
     Dosage: 6 DF, DAILY IN THE MORNING
     Route: 048
     Dates: start: 20211115, end: 20211121
  2. BRAFTOVI [Suspect]
     Active Substance: ENCORAFENIB
     Dosage: 6 DF, DAILY IN THE MORNING
     Route: 048
     Dates: start: 20211124, end: 20211124
  3. BRAFTOVI [Suspect]
     Active Substance: ENCORAFENIB
     Dosage: 4 DF, IN THE MORNING
     Route: 048
     Dates: start: 20211209
  4. MEKTOVI [Suspect]
     Active Substance: BINIMETINIB
     Indication: Malignant melanoma
     Dosage: 3 DF, BID (2/DAY)
     Route: 048
     Dates: start: 20211115, end: 20211121
  5. MEKTOVI [Suspect]
     Active Substance: BINIMETINIB
     Dosage: 3 DF, BID (2/DAY)
     Route: 048
     Dates: start: 20211124, end: 20211124
  6. MEKTOVI [Suspect]
     Active Substance: BINIMETINIB
     Dosage: 3 DF, BID (2/DAY), -3 CAPS MEKTOVI15MG MORNING + 3 CAPS MEKTOVI NIGHT
     Route: 048
     Dates: start: 20211209

REACTIONS (9)
  - Intention tremor [Recovered/Resolved]
  - Pyrexia [Recovered/Resolved]
  - Fatigue [Recovering/Resolving]
  - Decreased appetite [Recovering/Resolving]
  - Intention tremor [Recovered/Resolved]
  - Decreased appetite [Recovered/Resolved]
  - Pyrexia [Recovered/Resolved]
  - Fatigue [Recovered/Resolved]
  - Chills [Not Recovered/Not Resolved]

NARRATIVE: CASE EVENT DATE: 20211115
